FAERS Safety Report 20574538 (Version 1)
Quarter: 2022Q1

REPORT INFORMATION
  Report Type: Other
  Country: DE (occurrence: None)
  Receive Date: 20220309
  Receipt Date: 20220309
  Transmission Date: 20220423
  Serious: No
  Sender: FDA-Public Use
  Company Number: DE-ROCHE-3044889

PATIENT
  Sex: Female
  Weight: 57 kg

DRUGS (15)
  1. OCRELIZUMAB [Suspect]
     Active Substance: OCRELIZUMAB
     Indication: Relapsing multiple sclerosis
     Route: 042
     Dates: start: 20190114, end: 20190128
  2. OCRELIZUMAB [Suspect]
     Active Substance: OCRELIZUMAB
     Route: 042
     Dates: start: 20190723
  3. DIMETHINDENE [Concomitant]
     Active Substance: DIMETHINDENE
     Indication: Premedication
     Route: 042
     Dates: start: 20190723
  4. DIMETHINDENE [Concomitant]
     Active Substance: DIMETHINDENE
     Route: 042
     Dates: start: 20210119
  5. DIMETHINDENE [Concomitant]
     Active Substance: DIMETHINDENE
     Route: 042
     Dates: start: 20190114, end: 20190128
  6. DIMETHINDENE [Concomitant]
     Active Substance: DIMETHINDENE
     Route: 042
     Dates: start: 20220121
  7. CORTISONE [Concomitant]
     Active Substance: CORTISONE
     Indication: Premedication
     Route: 042
     Dates: start: 20210121
  8. CORTISONE [Concomitant]
     Active Substance: CORTISONE
     Route: 042
     Dates: start: 20190114, end: 20190128
  9. CORTISONE [Concomitant]
     Active Substance: CORTISONE
     Route: 042
     Dates: start: 20190723
  10. LEVOTHYROXINE [Concomitant]
     Active Substance: LEVOTHYROXINE
     Indication: Hypothyroidism
     Route: 048
  11. ACETAMINOPHEN [Concomitant]
     Active Substance: ACETAMINOPHEN
     Indication: Premedication
     Route: 048
     Dates: start: 20210119
  12. ACETAMINOPHEN [Concomitant]
     Active Substance: ACETAMINOPHEN
     Route: 048
     Dates: start: 20220121
  13. ACETAMINOPHEN [Concomitant]
     Active Substance: ACETAMINOPHEN
     Route: 048
     Dates: start: 20190723
  14. ACETAMINOPHEN [Concomitant]
     Active Substance: ACETAMINOPHEN
     Route: 048
     Dates: start: 20190114, end: 20190128
  15. CORTISONE [Concomitant]
     Active Substance: CORTISONE
     Indication: Premedication
     Route: 042
     Dates: start: 20210119

REACTIONS (1)
  - COVID-19 [Recovering/Resolving]
